FAERS Safety Report 20612819 (Version 1)
Quarter: 2022Q1

REPORT INFORMATION
  Report Type: Spontaneous
  Country: US (occurrence: None)
  Receive Date: 20220316
  Receipt Date: 20220316
  Transmission Date: 20220423
  Serious: Yes (Hospitalization, Disabling)
  Sender: FDA-Public Use
  Company Number: None

PATIENT
  Age: 68 Year
  Sex: Male
  Weight: 108 kg

DRUGS (5)
  1. TESTOSTERONE CYPIONATE [Suspect]
     Active Substance: TESTOSTERONE CYPIONATE
     Indication: Weight decreased
     Dosage: OTHER QUANTITY : 1 INJECTION(S);?OTHER FREQUENCY : WEEKLY;?
     Route: 030
     Dates: start: 20211110, end: 20211214
  2. TAMOXIFEN [Suspect]
     Active Substance: TAMOXIFEN
  3. IBUTAMOREN [Suspect]
     Active Substance: IBUTAMOREN
  4. METOPROLOL [Concomitant]
     Active Substance: METOPROLOL
  5. OMEPRAZOLE [Concomitant]
     Active Substance: OMEPRAZOLE

REACTIONS (3)
  - Cerebrovascular accident [None]
  - Product advertising issue [None]
  - Product prescribing issue [None]

NARRATIVE: CASE EVENT DATE: 20211214
